FAERS Safety Report 21524024 (Version 1)
Quarter: 2022Q4

REPORT INFORMATION
  Report Type: Spontaneous
  Country: DE (occurrence: DE)
  Receive Date: 20221029
  Receipt Date: 20221029
  Transmission Date: 20230112
  Serious: Yes (Hospitalization)
  Sender: FDA-Public Use
  Company Number: DE-ADRED-05256-01

PATIENT
  Age: 77 Year
  Sex: Female
  Weight: 50 kg

DRUGS (8)
  1. SUNITINIB [Suspect]
     Active Substance: SUNITINIB
     Indication: Product used for unknown indication
     Dosage: NK MG,
     Route: 065
  2. METAMIZOL [Concomitant]
     Active Substance: METAMIZOLE SODIUM
     Indication: Product used for unknown indication
     Dosage: 500 MG,IF NECESSARY
     Route: 048
  3. METOPROLOL [Concomitant]
     Active Substance: METOPROLOL
     Indication: Product used for unknown indication
     Dosage: 23.75 MILLIGRAM DAILY; 23.75 MG, 1-0-0-0
     Route: 048
  4. NEBIVOLOL [Concomitant]
     Active Substance: NEBIVOLOL
     Indication: Product used for unknown indication
     Dosage: 5 MILLIGRAM DAILY; 5 MG, 0-1-0-0,
     Route: 048
  5. METOCLOPRAMIDE [Concomitant]
     Active Substance: METOCLOPRAMIDE
     Indication: Product used for unknown indication
     Dosage: 10 MILLIGRAM DAILY; 10 MG, 1-0-0-0
     Route: 048
  6. OMEPRAZOLE [Concomitant]
     Active Substance: OMEPRAZOLE
     Indication: Product used for unknown indication
     Dosage: 20 MILLIGRAM DAILY; 20 MG, 1-0-0-0,
     Route: 048
  7. HYDROCHLOROTHIAZIDE [Concomitant]
     Active Substance: HYDROCHLOROTHIAZIDE
     Indication: Product used for unknown indication
     Dosage: 12.5 MILLIGRAM DAILY; 12.5 MG, 1-0-0-0,
     Route: 048
  8. AMLODIPINE BESYLATE [Concomitant]
     Active Substance: AMLODIPINE BESYLATE
     Indication: Product used for unknown indication
     Dosage: 5 MILLIGRAM DAILY; 5 MG, 1-0-0-0
     Route: 048

REACTIONS (1)
  - Blindness unilateral [Recovering/Resolving]

NARRATIVE: CASE EVENT DATE: 20200120
